FAERS Safety Report 21418397 (Version 1)
Quarter: 2022Q4

REPORT INFORMATION
  Report Type: Spontaneous
  Country: US (occurrence: None)
  Receive Date: 20221005
  Receipt Date: 20221005
  Transmission Date: 20230112
  Serious: Yes (Life-Threatening, Hospitalization, Disabling, Other)
  Sender: FDA-Public Use
  Company Number: None

PATIENT
  Age: 64 Year
  Sex: Female
  Weight: 67.5 kg

DRUGS (20)
  1. LORAZEPAM [Suspect]
     Active Substance: LORAZEPAM
     Indication: Insomnia
     Dosage: OTHER QUANTITY : 1 TABLET(S);?FREQUENCY : AT BEDTIME;?
     Route: 048
     Dates: start: 19980101, end: 20191024
  2. SYNTHROID [Concomitant]
     Active Substance: LEVOTHYROXINE SODIUM
  3. NP THYROID [Concomitant]
     Active Substance: LEVOTHYROXINE\LIOTHYRONINE
  4. PROGESTERONE [Concomitant]
     Active Substance: PROGESTERONE
  5. ESTRADIOL [Concomitant]
     Active Substance: ESTRADIOL
  6. VITAMIN B12 [Concomitant]
     Active Substance: CYANOCOBALAMIN
  7. FOLIC ACID [Concomitant]
     Active Substance: FOLIC ACID
  8. Digestive aid [Concomitant]
  9. FISH OIL [Concomitant]
     Active Substance: FISH OIL
  10. COENZYME Q10 [Concomitant]
     Active Substance: DIETARY SUPPLEMENT\UBIDECARENONE
  11. YeastX [Concomitant]
  12. VITAMIN D [Concomitant]
     Active Substance: VITAMIN D NOS
  13. VITAMIN A [Concomitant]
     Active Substance: VITAMIN A
  14. InnerCalm [Concomitant]
  15. Microbiome [Concomitant]
  16. PROBIOTICS NOS [Concomitant]
     Active Substance: PROBIOTICS NOS
  17. Jerusalem [Concomitant]
  18. ARTICHOKE [Concomitant]
     Active Substance: ARTICHOKE
  19. NUTRICLEANSE [Concomitant]
  20. 7KetoDHEA [Concomitant]

REACTIONS (50)
  - Tinnitus [None]
  - Insomnia [None]
  - Ear infection [None]
  - Incorrect product administration duration [None]
  - Intrusive thoughts [None]
  - Panic attack [None]
  - Inappropriate schedule of product discontinuation [None]
  - Dyskinesia [None]
  - Akathisia [None]
  - Vision blurred [None]
  - Depression [None]
  - Anxiety [None]
  - Agitation [None]
  - Agoraphobia [None]
  - Paraesthesia [None]
  - Obsessive thoughts [None]
  - Musical ear syndrome [None]
  - Fear [None]
  - Cardiac flutter [None]
  - Weight decreased [None]
  - Post-traumatic stress disorder [None]
  - Loss of personal independence in daily activities [None]
  - Impaired driving ability [None]
  - Tachyphrenia [None]
  - Depersonalisation/derealisation disorder [None]
  - Derealisation [None]
  - Anxiety [None]
  - Suicidal ideation [None]
  - Reading disorder [None]
  - Photophobia [None]
  - Hyperacusis [None]
  - Paranoia [None]
  - Nervousness [None]
  - Dyspepsia [None]
  - Sleep terror [None]
  - Nightmare [None]
  - Social avoidant behaviour [None]
  - Decreased appetite [None]
  - Disturbance in attention [None]
  - Feeling abnormal [None]
  - Anhedonia [None]
  - Restlessness [None]
  - Feeling of despair [None]
  - Feeling guilty [None]
  - Helplessness [None]
  - Impaired self-care [None]
  - Impaired work ability [None]
  - Bedridden [None]
  - Injury [None]
  - Asthenia [None]

NARRATIVE: CASE EVENT DATE: 20190905
